FAERS Safety Report 8934145 (Version 1)
Quarter: 2012Q4

REPORT INFORMATION
  Report Type: 
  Country: US (occurrence: US)
  Receive Date: 20121129
  Receipt Date: 20121129
  Transmission Date: 20130627
  Serious: No
  Sender: FDA-Public Use
  Company Number: US-GLAXOSMITHKLINE-A0975579A

PATIENT
  Age: 54 Year
  Sex: Female

DRUGS (3)
  1. WELLBUTRIN SR [Suspect]
     Indication: DEPRESSION
     Dosage: 100MG Per day
     Route: 048
     Dates: start: 2004, end: 20120406
  2. NEURONTIN [Concomitant]
  3. XANAX [Concomitant]

REACTIONS (4)
  - Tinnitus [Not Recovered/Not Resolved]
  - Withdrawal syndrome [Not Recovered/Not Resolved]
  - Pruritus [Not Recovered/Not Resolved]
  - Formication [Not Recovered/Not Resolved]
